FAERS Safety Report 7733715-8 (Version None)
Quarter: 2011Q3

REPORT INFORMATION
  Report Type: 
  Country: None (occurrence: None)
  Receive Date: 20110907
  Receipt Date: 20110905
  Transmission Date: 20111222
  Serious: Yes (Hospitalization)
  Sender: FDA-Public Use
  Company Number: IT-SANOFI-AVENTIS-2011SA056949

PATIENT
  Age: 69 Year
  Sex: Female

DRUGS (4)
  1. ELOXATIN [Suspect]
     Route: 041
     Dates: start: 20110825, end: 20110825
  2. NORVASC [Concomitant]
     Route: 048
     Dates: start: 20060101
  3. ELOXATIN [Suspect]
     Route: 041
     Dates: start: 20110804, end: 20110804
  4. XELODA [Concomitant]
     Route: 048
     Dates: start: 20110804, end: 20110818

REACTIONS (6)
  - DIARRHOEA [None]
  - CHILLS [None]
  - HYPERPYREXIA [None]
  - VOMITING [None]
  - CYANOSIS [None]
  - DYSPNOEA [None]
